FAERS Safety Report 16994270 (Version 1)
Quarter: 2019Q4

REPORT INFORMATION
  Report Type: Other
  Country: TR (occurrence: TR)
  Receive Date: 20191105
  Receipt Date: 20191105
  Transmission Date: 20200122
  Serious: Yes (Hospitalization)
  Sender: FDA-Public Use
  Company Number: TR-ACIC FINE CHEMICALS INC-2076465

PATIENT
  Age: 52 Year
  Sex: Male

DRUGS (2)
  1. LEVETIRACETAM. [Suspect]
     Active Substance: LEVETIRACETAM
     Indication: GENERALISED TONIC-CLONIC SEIZURE
  2. PHENYTOIN. [Concomitant]
     Active Substance: PHENYTOIN

REACTIONS (9)
  - Agitation [Recovered/Resolved]
  - Tachyphrenia [Recovered/Resolved]
  - Irritability [Recovered/Resolved]
  - Insomnia [Recovered/Resolved]
  - Aggression [Recovered/Resolved]
  - Speech disorder [Recovered/Resolved]
  - Affect lability [Recovered/Resolved]
  - Distractibility [Recovered/Resolved]
  - Bipolar disorder [Recovered/Resolved]
